FAERS Safety Report 9321845 (Version 1)
Quarter: 2013Q2

REPORT INFORMATION
  Report Type: Spontaneous
  Country: US (occurrence: US)
  Receive Date: 20130531
  Receipt Date: 20130531
  Transmission Date: 20140414
  Serious: No
  Sender: FDA-Public Use
  Company Number: US-ABBOTT-12P-163-0972882-00

PATIENT
  Sex: Female
  Weight: 59.02 kg

DRUGS (12)
  1. MARINOL [Suspect]
     Indication: FIBROMYALGIA
     Dosage: 1 EVERY 4 HRS/ TWICE DAILY
     Dates: start: 2010
  2. MARINOL [Suspect]
     Indication: MUSCLE SPASMS
  3. MARINOL [Suspect]
     Indication: NAUSEA
  4. OPANA [Concomitant]
     Indication: PAIN
  5. MORPHINE SULFATE IR [Concomitant]
     Indication: PAIN
  6. XANAX [Concomitant]
     Indication: PRODUCT USED FOR UNKNOWN INDICATION
  7. ZANAFLEX [Concomitant]
     Indication: PRODUCT USED FOR UNKNOWN INDICATION
  8. WELLBUTRIN [Concomitant]
     Indication: PRODUCT USED FOR UNKNOWN INDICATION
  9. PROTONIX [Concomitant]
     Indication: PROPHYLAXIS AGAINST GASTROINTESTINAL ULCER
  10. TOPAMAX [Concomitant]
     Indication: MIGRAINE PROPHYLAXIS
  11. TOPAMAX [Concomitant]
     Indication: FIBROMYALGIA
  12. REQUIP [Concomitant]
     Indication: RESTLESS LEGS SYNDROME

REACTIONS (1)
  - Off label use [Unknown]
